FAERS Safety Report 9154333 (Version 1)
Quarter: 2013Q1

REPORT INFORMATION
  Report Type: Spontaneous
  Country: DE (occurrence: DE)
  Receive Date: 20130311
  Receipt Date: 20130311
  Transmission Date: 20140127
  Serious: Yes (Other)
  Sender: FDA-Public Use
  Company Number: DE-PFIZER INC-2013078535

PATIENT
  Age: 72 Year
  Sex: Female

DRUGS (4)
  1. UNACID [Suspect]
     Indication: PROPHYLAXIS
     Dosage: 2-3 TIMES A DAY
     Dates: start: 201302, end: 201302
  2. UNACID [Suspect]
     Indication: PROPHYLAXIS
     Dosage: 375 MG, 2 TAB IN THE MORNING AND 2 IN THE EVENING
     Route: 048
     Dates: start: 201302, end: 201302
  3. NOVAMIN [Concomitant]
  4. RANIDURA [Concomitant]

REACTIONS (4)
  - Atrial fibrillation [Unknown]
  - Malaise [Unknown]
  - Hypotension [Unknown]
  - Paraesthesia [Unknown]
